FAERS Safety Report 5689578-8 (Version None)
Quarter: 2008Q1

REPORT INFORMATION
  Report Type: 
  Country: None (occurrence: None)
  Receive Date: 20080331
  Receipt Date: 20080321
  Transmission Date: 20080703
  Serious: Yes (Other)
  Sender: FDA-Public Use
  Company Number: JP-MERCK-0803USA03708

PATIENT
  Age: 33 Year
  Sex: Male

DRUGS (1)
  1. PROPECIA [Suspect]
     Indication: ANDROGENETIC ALOPECIA
     Route: 048
     Dates: start: 20071001

REACTIONS (2)
  - BLOOD URIC ACID INCREASED [None]
  - CARCINOEMBRYONIC ANTIGEN INCREASED [None]
